FAERS Safety Report 7986398-6 (Version None)
Quarter: 2011Q4

REPORT INFORMATION
  Report Type: 
  Country: None (occurrence: None)
  Receive Date: 20111216
  Receipt Date: 20110804
  Transmission Date: 20120403
  Serious: No
  Sender: FDA-Public Use
  Company Number: US-GLAXOSMITHKLINE-A0939908A

PATIENT
  Age: 70 Year
  Sex: Female

DRUGS (3)
  1. COREG CR [Suspect]
     Indication: HYPERTENSION
     Dosage: 20MG PER DAY
     Route: 048
  2. UNKNOWN MEDICATION [Concomitant]
  3. LISINOPRIL [Concomitant]

REACTIONS (9)
  - HEADACHE [None]
  - FATIGUE [None]
  - VISUAL IMPAIRMENT [None]
  - RASH [None]
  - BLOOD PRESSURE INADEQUATELY CONTROLLED [None]
  - DRUG INEFFECTIVE [None]
  - BLOOD PRESSURE INCREASED [None]
  - NECK PAIN [None]
  - TREATMENT NONCOMPLIANCE [None]
